FAERS Safety Report 18568433 (Version 2)
Quarter: 2020Q4

REPORT INFORMATION
  Report Type: Spontaneous
  Country: JP (occurrence: JP)
  Receive Date: 20201202
  Receipt Date: 20201207
  Transmission Date: 20210114
  Serious: Yes (Death)
  Sender: FDA-Public Use
  Company Number: JP-JNJFOC-20201131699

PATIENT
  Age: 80 Year
  Sex: Female

DRUGS (2)
  1. ONEDURO [Suspect]
     Active Substance: FENTANYL
     Indication: CANCER PAIN
     Dosage: FENTANYL:0.84MG
     Route: 062
     Dates: start: 2020, end: 2020
  2. ONEDURO [Suspect]
     Active Substance: FENTANYL
     Dosage: FENTANYL:0.84MG
     Route: 062
     Dates: start: 2020, end: 2020

REACTIONS (2)
  - Pain [Unknown]
  - Hepatocellular carcinoma [Fatal]

NARRATIVE: CASE EVENT DATE: 20201102
